FAERS Safety Report 8402806-0 (Version None)
Quarter: 2012Q2

REPORT INFORMATION
  Report Type: 
  Country: None (occurrence: None)
  Receive Date: 20120601
  Receipt Date: 20120524
  Transmission Date: 20120825
  Serious: Yes (Other)
  Sender: FDA-Public Use
  Company Number: US-ABBOTT-12P-163-0939209-00

PATIENT
  Age: 67 Year
  Sex: Female

DRUGS (3)
  1. A WHOLE BUNCH OF UNKNOWN MEDICATIONS [Concomitant]
     Indication: PRODUCT USED FOR UNKNOWN INDICATION
  2. HUMIRA [Suspect]
     Indication: RHEUMATOID ARTHRITIS
     Dates: start: 20050101, end: 20070101
  3. HUMIRA [Suspect]
     Dates: start: 20080101, end: 20100101

REACTIONS (4)
  - HEART VALVE REPLACEMENT [None]
  - DRUG INEFFECTIVE [None]
  - PAIN [None]
  - KNEE ARTHROPLASTY [None]
